FAERS Safety Report 14228133 (Version 1)
Quarter: 2017Q4

REPORT INFORMATION
  Report Type: Spontaneous
  Country: AU (occurrence: AU)
  Receive Date: 20171127
  Receipt Date: 20171127
  Transmission Date: 20180321
  Serious: Yes (Hospitalization, Other)
  Sender: FDA-Public Use
  Company Number: AU-ABBVIE-17P-008-2170805-00

PATIENT
  Age: 64 Year
  Sex: Male

DRUGS (8)
  1. VENETOCLAX. [Suspect]
     Active Substance: VENETOCLAX
     Indication: PLASMA CELL MYELOMA
     Dosage: DAY 1 TO 21
     Route: 048
     Dates: start: 20160927, end: 20170410
  2. BORTEZOMIB [Suspect]
     Active Substance: BORTEZOMIB
     Indication: PLASMA CELL MYELOMA
     Dosage: DAY 1,4,8, AND 11
     Route: 058
     Dates: start: 20160927, end: 20170404
  3. ALLOPURINOL. [Concomitant]
     Active Substance: ALLOPURINOL
     Indication: PROPHYLAXIS
  4. DEXAMETHASONE. [Suspect]
     Active Substance: DEXAMETHASONE
     Indication: PLASMA CELL MYELOMA
     Dosage: DAYS 1,2,4,5,8,9,11, AND 12
     Route: 048
     Dates: start: 20160927, end: 20170405
  5. CHLORSIG (CHLORAMPHENICOL) [Concomitant]
     Indication: CONJUNCTIVITIS
  6. WARFARIN [Concomitant]
     Active Substance: WARFARIN
     Indication: THROMBOSIS PROPHYLAXIS
  7. PANTOPRAZOLE [Concomitant]
     Active Substance: PANTOPRAZOLE
     Indication: GASTRITIS PROPHYLAXIS
  8. VALACICLOVIR [Concomitant]
     Active Substance: VALACYCLOVIR HYDROCHLORIDE
     Indication: PROPHYLAXIS

REACTIONS (11)
  - Atrial enlargement [Unknown]
  - Chondrocalcinosis pyrophosphate [Unknown]
  - Conjunctivitis [Unknown]
  - Streptococcus test positive [Unknown]
  - Pleural effusion [Unknown]
  - Off label use [Unknown]
  - Atelectasis [Unknown]
  - Atrial fibrillation [Unknown]
  - Cardiothoracic ratio increased [Unknown]
  - Endocarditis [Unknown]
  - Aortic valve incompetence [Unknown]

NARRATIVE: CASE EVENT DATE: 20170311
